FAERS Safety Report 9200745 (Version 1)
Quarter: 2013Q2

REPORT INFORMATION
  Report Type: Spontaneous
  Country: BR (occurrence: BR)
  Receive Date: 20130401
  Receipt Date: 20130401
  Transmission Date: 20140414
  Serious: Yes (Other)
  Sender: FDA-Public Use
  Company Number: BR-AMGEN-BRASP2012055908

PATIENT
  Age: 61 Year
  Sex: Female
  Weight: 80 kg

DRUGS (6)
  1. ENBREL [Suspect]
     Indication: RHEUMATOID ARTHRITIS
     Dosage: 50 MG, ONCE WEEKLY
     Route: 058
     Dates: start: 201202
  2. ENBREL [Suspect]
     Dosage: UNK
  3. ENBREL [Suspect]
     Dosage: 25 MG, TWICE A WEEK
  4. ATENOLOL [Concomitant]
     Indication: HYPERTENSION
     Dosage: 50 MG, 1X/DAY
  5. HYDROCHLOROTHIAZIDE [Concomitant]
     Indication: HYPERTENSION
     Dosage: 25 MG, 1X/DAY
  6. LEFLUNOMIDE [Concomitant]
     Indication: RHEUMATOID ARTHRITIS
     Dosage: 1 TABLET OF 20 MG, AFTER LUNCH

REACTIONS (7)
  - Thyroid disorder [Unknown]
  - Pain [Unknown]
  - Pain in extremity [Unknown]
  - Insomnia [Unknown]
  - Injection site induration [Unknown]
  - Arthralgia [Not Recovered/Not Resolved]
  - Injection site pain [Recovered/Resolved]
